FAERS Safety Report 5522812-3 (Version None)
Quarter: 2007Q4

REPORT INFORMATION
  Report Type: 
  Country: None (occurrence: None)
  Receive Date: 20071120
  Receipt Date: 20071113
  Transmission Date: 20080405
  Serious: Yes (Hospitalization)
  Sender: FDA-Public Use
  Company Number: RU-MERCK-0711RUS00005

PATIENT
  Age: 66 Year
  Sex: Female

DRUGS (9)
  1. ZOCOR [Suspect]
     Indication: MYOCARDIAL ISCHAEMIA
     Route: 048
     Dates: start: 20070419
  2. ISOSORBIDE DINITRATE [Concomitant]
     Indication: MYOCARDIAL ISCHAEMIA
     Route: 065
  3. VALSARTAN [Concomitant]
     Indication: MYOCARDIAL ISCHAEMIA
     Route: 048
  4. AMLODIPINE BESYLATE [Concomitant]
     Indication: MYOCARDIAL ISCHAEMIA
     Route: 048
  5. CLOPIDOGREL BISULFATE [Concomitant]
     Indication: MYOCARDIAL ISCHAEMIA
     Route: 048
  6. ASPIRIN AND MAGNESIUM HYDROXIDE [Concomitant]
     Indication: MYOCARDIAL ISCHAEMIA
     Route: 048
  7. SPIRONOLACTONE [Concomitant]
     Indication: MYOCARDIAL ISCHAEMIA
     Route: 048
  8. GLICLAZIDE [Concomitant]
     Indication: DIABETES MELLITUS
     Route: 048
  9. METFORMIN HYDROCHLORIDE [Concomitant]
     Indication: DIABETES MELLITUS
     Route: 048

REACTIONS (1)
  - CARDIOVASCULAR DISORDER [None]
